FAERS Safety Report 5335684-7 (Version None)
Quarter: 2007Q2

REPORT INFORMATION
  Report Type: 
  Country: None (occurrence: None)
  Receive Date: 20070322
  Receipt Date: 20070207
  Transmission Date: 20071010
  Serious: No
  Sender: FDA-Public Use
  Company Number: 2007US000344

PATIENT
  Age: 63 Year
  Sex: Male

DRUGS (4)
  1. VESICARE [Suspect]
     Indication: HYPERTONIC BLADDER
     Dosage: 5 MG, ORAL
     Route: 048
     Dates: start: 20070205
  2. CRESTOR [Concomitant]
  3. ZESTRIL [Concomitant]
  4. AMBIEN [Concomitant]

REACTIONS (1)
  - CONSTIPATION [None]
